FAERS Safety Report 5036675-6 (Version None)
Quarter: 2006Q2

REPORT INFORMATION
  Report Type: 
  Country: None (occurrence: None)
  Receive Date: 20060628
  Receipt Date: 20060614
  Transmission Date: 20061013
  Serious: Yes (Death)
  Sender: FDA-Public Use
  Company Number: GBWYE729214JUN06

PATIENT
  Sex: Female

DRUGS (8)
  1. ENBREL [Suspect]
     Indication: RHEUMATOID ARTHRITIS
     Dosage: UNKNOWN
     Route: 058
     Dates: start: 20030801, end: 20051201
  2. FOSAMAX [Concomitant]
  3. WARFARIN SODIUM [Concomitant]
  4. PREDNISOLONE [Concomitant]
  5. SOTALOL HCL [Concomitant]
  6. CARBINOXAMINE MALEATE/PARACETAMOL/PHENYLEPHRINE HYDROCHLORIDE [Concomitant]
  7. BENDROFLUMETHIAZIDE [Concomitant]
  8. HEXOPAL [Concomitant]
     Dosage: UNKNOWN

REACTIONS (2)
  - DEEP VEIN THROMBOSIS [None]
  - PULMONARY EMBOLISM [None]
